FAERS Safety Report 21932070 (Version 1)
Quarter: 2023Q1

REPORT INFORMATION
  Report Type: Spontaneous
  Country: JP (occurrence: JP)
  Receive Date: 20230131
  Receipt Date: 20230131
  Transmission Date: 20230417
  Serious: Yes (Other)
  Sender: FDA-Public Use
  Company Number: JP-PFIZER INC-PV202200132544

PATIENT
  Sex: Female
  Weight: 49.7 kg

DRUGS (4)
  1. LORBRENA [Suspect]
     Active Substance: LORLATINIB
     Indication: Non-small cell lung cancer
     Dosage: 100 MG, DAILY
     Dates: start: 20200306, end: 20200512
  2. LORBRENA [Suspect]
     Active Substance: LORLATINIB
     Dosage: 75 MG, DAILY
     Dates: start: 20200513, end: 20200526
  3. LORBRENA [Suspect]
     Active Substance: LORLATINIB
     Dosage: 75 MG, DAILY
     Dates: start: 20200708, end: 20200721
  4. LORBRENA [Suspect]
     Active Substance: LORLATINIB
     Dosage: 50 MG, DAILY
     Dates: start: 20200722, end: 20200929

REACTIONS (4)
  - Neuropathy peripheral [Recovered/Resolved]
  - Renal impairment [Unknown]
  - Oedema peripheral [Recovered/Resolved]
  - Dyslipidaemia [Recovered/Resolved]

NARRATIVE: CASE EVENT DATE: 20200430
